FAERS Safety Report 18578360 (Version 1)
Quarter: 2020Q4

REPORT INFORMATION
  Report Type: Spontaneous
  Country: ES (occurrence: ES)
  Receive Date: 20201204
  Receipt Date: 20201204
  Transmission Date: 20210114
  Serious: Yes (Other)
  Sender: FDA-Public Use
  Company Number: ES-EMD SERONO-9201011

PATIENT
  Age: 54 Year
  Sex: Female

DRUGS (8)
  1. CALCIUM                            /00060701/ [Concomitant]
     Active Substance: CALCIUM
     Indication: PRODUCT USED FOR UNKNOWN INDICATION
     Dates: start: 2019
  2. AMANTADINE. [Concomitant]
     Active Substance: AMANTADINE HYDROCHLORIDE
     Indication: PRODUCT USED FOR UNKNOWN INDICATION
     Dates: start: 2019
  3. MAVENCLAD [Suspect]
     Active Substance: CLADRIBINE
     Indication: MULTIPLE SCLEROSIS
     Dosage: FIRST COURSE (YEAR ONE MONTH ONE) THERAPY
     Dates: start: 201909
  4. MAVENCLAD [Suspect]
     Active Substance: CLADRIBINE
     Dosage: FOURTH COURSE (YEAR TWO MONTH TWO) THERAPY: TOOK FIRST DOSE AND WAS POSTPONED
  5. MAVENCLAD [Suspect]
     Active Substance: CLADRIBINE
     Dosage: SECOND COURSE (YEAR ONE MONTH TWO) THERAPY
     Dates: start: 201910
  6. MAVENCLAD [Suspect]
     Active Substance: CLADRIBINE
     Dosage: THIRD COURSE (YEAR TWO MONTH ONE) THERAPY
     Dates: start: 202009
  7. VITAMIN D                          /00107901/ [Concomitant]
     Active Substance: ERGOCALCIFEROL
     Indication: PRODUCT USED FOR UNKNOWN INDICATION
     Dates: start: 2019
  8. SIMVASTATIN. [Concomitant]
     Active Substance: SIMVASTATIN
     Indication: PRODUCT USED FOR UNKNOWN INDICATION
     Dosage: 20 (UNSPECIFIED UNITS)
     Dates: start: 2019

REACTIONS (4)
  - Viral infection [Recovered/Resolved]
  - Facial paralysis [Recovered/Resolved]
  - Lymphopenia [Unknown]
  - Tooth extraction [Unknown]

NARRATIVE: CASE EVENT DATE: 20200827
